FAERS Safety Report 22082698 (Version 1)
Quarter: 2023Q1

REPORT INFORMATION
  Report Type: Spontaneous
  Country: SA (occurrence: SA)
  Receive Date: 20230310
  Receipt Date: 20230310
  Transmission Date: 20230418
  Serious: Yes (Hospitalization, Other)
  Sender: FDA-Public Use
  Company Number: SA-ALKEM LABORATORIES LIMITED-SA-ALKEM-2023-02710

PATIENT
  Age: 2 Year
  Sex: Female
  Weight: 13 kg

DRUGS (7)
  1. VANCOMYCIN [Interacting]
     Active Substance: VANCOMYCIN
     Indication: Pneumonia
     Dosage: 60 MG/KG/DAY
     Route: 065
  2. VANCOMYCIN [Interacting]
     Active Substance: VANCOMYCIN
     Indication: Acute respiratory distress syndrome
     Dosage: 70 MG/KG/DAY
     Route: 065
  3. VANCOMYCIN [Interacting]
     Active Substance: VANCOMYCIN
     Dosage: 100 MG/KG/DAY
     Route: 065
  4. PIPERACILLIN SODIUM\TAZOBACTAM SODIUM [Interacting]
     Active Substance: PIPERACILLIN SODIUM\TAZOBACTAM SODIUM
     Indication: Acute respiratory distress syndrome
     Dosage: 300 MG/KG/DAY
     Route: 065
  5. PIPERACILLIN SODIUM\TAZOBACTAM SODIUM [Interacting]
     Active Substance: PIPERACILLIN SODIUM\TAZOBACTAM SODIUM
     Indication: Pneumonia
  6. CEFTRIAXONE [Concomitant]
     Active Substance: CEFTRIAXONE
     Indication: Acute respiratory distress syndrome
     Dosage: 100 MILLIGRAM/KILOGRAM, QD
     Route: 065
  7. CEFTRIAXONE [Concomitant]
     Active Substance: CEFTRIAXONE
     Indication: Pneumonia

REACTIONS (4)
  - Acute kidney injury [Recovering/Resolving]
  - Drug level increased [Unknown]
  - Drug interaction [Unknown]
  - Therapy change [Unknown]
